FAERS Safety Report 7756932-X (Version None)
Quarter: 2011Q3

REPORT INFORMATION
  Report Type: 
  Country: None (occurrence: None)
  Receive Date: 20110916
  Receipt Date: 20110913
  Transmission Date: 20111222
  Serious: Yes (Hospitalization)
  Sender: FDA-Public Use
  Company Number: JP-GLAXOSMITHKLINE-B0744077A

PATIENT
  Sex: Female

DRUGS (7)
  1. ALPRAZOLAM [Concomitant]
     Indication: BIPOLAR II DISORDER
     Dosage: 2.4MG PER DAY
     Route: 048
     Dates: start: 20100521
  2. ZOLPIDEM [Concomitant]
     Indication: INSOMNIA
     Dosage: 10MG PER DAY
     Route: 048
     Dates: start: 20100424
  3. BIPERIDEN HYDROCHLORIDE TAB [Concomitant]
     Indication: TREMOR
     Dosage: 2MG PER DAY
     Route: 048
     Dates: start: 20090508
  4. LAMICTAL [Suspect]
     Indication: BIPOLAR II DISORDER
     Dosage: 25MG ALTERNATE DAYS
     Route: 048
     Dates: start: 20110617, end: 20110630
  5. LAMICTAL [Suspect]
     Dosage: 25MG PER DAY
     Route: 048
     Dates: start: 20110701, end: 20110714
  6. DEPAKENE [Concomitant]
     Indication: BIPOLAR II DISORDER
     Dosage: 600MG PER DAY
     Route: 048
     Dates: start: 20110209
  7. LITHIUM CARBONATE [Concomitant]
     Indication: BIPOLAR II DISORDER
     Dosage: 300MG PER DAY
     Route: 048
     Dates: start: 20110721

REACTIONS (3)
  - ORAL PAIN [None]
  - STEVENS-JOHNSON SYNDROME [None]
  - RASH [None]
